FAERS Safety Report 21682095 (Version 1)
Quarter: 2022Q4

REPORT INFORMATION
  Report Type: Spontaneous
  Country: US (occurrence: US)
  Receive Date: 20221205
  Receipt Date: 20221205
  Transmission Date: 20230112
  Serious: No
  Sender: FDA-Public Use
  Company Number: US-PFIZER INC-2020227664

PATIENT
  Age: 45 Year
  Sex: Female

DRUGS (3)
  1. XELJANZ [Suspect]
     Active Substance: TOFACITINIB CITRATE
     Dosage: 5 MG, 1X/DAY
     Dates: start: 20200610
  2. XELJANZ [Suspect]
     Active Substance: TOFACITINIB CITRATE
     Dosage: 5 MG, 1X/DAY (1 TABLET DAILY ALTERNATING WITH 1 TABLET TWICE DAILY EVERY OTHER DAY)
     Dates: start: 20210511
  3. XELJANZ [Suspect]
     Active Substance: TOFACITINIB CITRATE
     Dosage: 5 MG, 2X/DAY (1 TABLET DAILY ALTERNATING WITH 1 TABLET TWICE DAILY EVERY OTHER DAY)
     Dates: start: 20210511

REACTIONS (4)
  - Liver function test increased [Unknown]
  - Illness [Unknown]
  - Infection susceptibility increased [Unknown]
  - Off label use [Unknown]
